FAERS Safety Report 15774534 (Version 5)
Quarter: 2021Q2

REPORT INFORMATION
  Report Type: Report from Study
  Country: JP (occurrence: JP)
  Receive Date: 20181229
  Receipt Date: 20210608
  Transmission Date: 20210716
  Serious: Yes (Death, Hospitalization, Other)
  Sender: FDA-Public Use
  Company Number: JP-GLAXOSMITHKLINE-JP2018JPN233036

PATIENT
  Age: 6 Decade
  Sex: Female
  Weight: 80 kg

DRUGS (3)
  1. BELIMUMAB SUBCUTANEOUS [Suspect]
     Active Substance: BELIMUMAB
     Indication: SYSTEMIC LUPUS ERYTHEMATOSUS
     Dosage: UNK
     Route: 058
     Dates: start: 201812
  2. CALONAL [Concomitant]
     Active Substance: ACETAMINOPHEN
     Dosage: UNK
  3. MEDICON (DEXTROMETHORPHAN HYDROBROMIDE HYDRATE) [Concomitant]
     Dosage: UNK

REACTIONS (13)
  - Bacteraemia [Fatal]
  - Cardio-respiratory arrest [Recovered/Resolved]
  - Escherichia sepsis [Fatal]
  - Shock [Fatal]
  - Altered state of consciousness [Not Recovered/Not Resolved]
  - Illness [Unknown]
  - Septic shock [Fatal]
  - Cardiac arrest [Recovered/Resolved]
  - Infection [Fatal]
  - Blood pressure decreased [Unknown]
  - Hypertension [Unknown]
  - Pyrexia [Unknown]
  - Cerebral ischaemia [Unknown]

NARRATIVE: CASE EVENT DATE: 201812
